FAERS Safety Report 16711390 (Version 1)
Quarter: 2019Q3

REPORT INFORMATION
  Report Type: Spontaneous
  Country: FI (occurrence: FI)
  Receive Date: 20190816
  Receipt Date: 20190816
  Transmission Date: 20191004
  Serious: Yes (Other)
  Sender: FDA-Public Use
  Company Number: FI-BAYER-2019-149065

PATIENT
  Age: 56 Year
  Sex: Female

DRUGS (3)
  1. MIRENA [Suspect]
     Active Substance: LEVONORGESTREL
     Indication: HORMONE REPLACEMENT THERAPY
     Dosage: 20 MCG/24HR, CONT
     Route: 015
  2. MIRENA [Suspect]
     Active Substance: LEVONORGESTREL
     Indication: HORMONE REPLACEMENT THERAPY
  3. MIRENA [Suspect]
     Active Substance: LEVONORGESTREL
     Indication: HORMONE REPLACEMENT THERAPY
     Dosage: 20 MCG/24HR, CONT
     Route: 015
     Dates: start: 2016

REACTIONS (33)
  - Malaise [None]
  - Weight increased [None]
  - Increased tendency to bruise [None]
  - Vaginal infection [None]
  - Nausea [None]
  - Heart rate increased [None]
  - Hepatic function abnormal [None]
  - Fatigue [None]
  - Depression [None]
  - Contusion [None]
  - Localised oedema [None]
  - Arrhythmia [None]
  - Skin hypertrophy [None]
  - Breast enlargement [None]
  - Oedema peripheral [None]
  - Asthenia [None]
  - Oedema [None]
  - Haemochromatosis [None]
  - Visual field defect [None]
  - Lyme disease [None]
  - Hyperferritinaemia [None]
  - Breast pain [None]
  - Device use issue [None]
  - Blood pressure increased [None]
  - Arthralgia [None]
  - Face oedema [None]
  - Dizziness [None]
  - Headache [None]
  - Stress [None]
  - Uterine haemorrhage [Recovered/Resolved]
  - Transferrin decreased [None]
  - Transferrin saturation increased [None]
  - Abdominal distension [None]

NARRATIVE: CASE EVENT DATE: 2017
